FAERS Safety Report 4457776-7 (Version None)
Quarter: 2004Q3

REPORT INFORMATION
  Report Type: 
  Country: None (occurrence: None)
  Receive Date: 20040917
  Receipt Date: 20031124
  Transmission Date: 20050211
  Serious: Yes (Hospitalization)
  Sender: FDA-Public Use
  Company Number: NSADSS2003009632

PATIENT
  Sex: Male

DRUGS (4)
  1. TOPAMAX [Suspect]
     Indication: EPILEPSY
     Dosage: 150 MG, 2 IN 1 DAY, ORAL
     Route: 048
     Dates: start: 19930101
  2. PHENOBARB (PHENOBARBITAL SODIUM) [Concomitant]
  3. TEGRETOL [Concomitant]
  4. ZANAFLEX [Concomitant]

REACTIONS (1)
  - INFECTION [None]
